FAERS Safety Report 16576603 (Version 1)
Quarter: 2019Q3

REPORT INFORMATION
  Report Type: Spontaneous
  Country: DE (occurrence: DE)
  Receive Date: 20190716
  Receipt Date: 20190716
  Transmission Date: 20191004
  Serious: Yes (Hospitalization)
  Sender: FDA-Public Use
  Company Number: DE-TEVA-2019-DE-1076701

PATIENT
  Age: 77 Year
  Sex: Female

DRUGS (10)
  1. CLEXANE [Suspect]
     Active Substance: ENOXAPARIN SODIUM
     Dosage: NK MG, 0-1-0-0
  2. BROMAZEPAM [Concomitant]
     Active Substance: BROMAZEPAM
     Dosage: 6 MG, 0-0-0-0.5
  3. PANTOPRAZOL [Concomitant]
     Active Substance: PANTOPRAZOLE SODIUM
     Dosage: 40 MG, 1-0-1-0
  4. CIPROFLOXACIN. [Suspect]
     Active Substance: CIPROFLOXACIN
     Dosage: 500 MG, DISCONTINUED ON 07.08.2018
     Dates: end: 20180807
  5. METRONIDAZOL [Concomitant]
     Active Substance: METRONIDAZOLE
     Dosage: 400 MG, DISCONTINUED ON 01.08.2017
     Dates: end: 20170801
  6. TORASEMID [Concomitant]
     Active Substance: TORSEMIDE
     Dosage: 10 MG, 1-0-0-0
  7. PRENT [Concomitant]
     Dosage: NK MG, 0.5-0-0-0
  8. MORONAL [Concomitant]
     Active Substance: NYSTATIN
     Dosage: NK MG, 1-1-1-1
  9. METAMIZOL [Concomitant]
     Active Substance: METAMIZOLE SODIUM
     Dosage: 500 MG, DEMAND
  10. XARELTO [Suspect]
     Active Substance: RIVAROXABAN
     Dosage: 15 MG, DISCONTINUED ON 02.08.2017
     Dates: end: 20170802

REACTIONS (4)
  - General physical health deterioration [Unknown]
  - Asthenia [Unknown]
  - Haematochezia [Unknown]
  - Anaemia [Unknown]
